FAERS Safety Report 16220958 (Version 4)
Quarter: 2019Q2

REPORT INFORMATION
  Report Type: Spontaneous
  Country: AU (occurrence: AU)
  Receive Date: 20190421
  Receipt Date: 20190531
  Transmission Date: 20190711
  Serious: Yes (Other)
  Sender: FDA-Public Use
  Company Number: AU-BEH-2019101407

PATIENT
  Age: 71 Year

DRUGS (26)
  1. PRIVIGEN [Suspect]
     Active Substance: HUMAN IMMUNOGLOBULIN G
     Dosage: 5 G, SINGLE
     Route: 042
     Dates: start: 20190213, end: 20190213
  2. PRIVIGEN [Suspect]
     Active Substance: HUMAN IMMUNOGLOBULIN G
     Dosage: 35 G, QMT
     Route: 042
     Dates: start: 20190103
  3. MAGNESIUM [Concomitant]
     Active Substance: MAGNESIUM
     Indication: MUSCLE CONTRACTIONS INVOLUNTARY
     Dosage: 500 ML, QD
     Route: 065
     Dates: start: 201808
  4. CETIRIZINE [Concomitant]
     Active Substance: CETIRIZINE HYDROCHLORIDE
     Indication: PREMEDICATION
     Dosage: 10 MG, PRN
     Route: 048
     Dates: start: 20180206
  5. MONTELUKAST [Concomitant]
     Active Substance: MONTELUKAST SODIUM
     Indication: PREMEDICATION
     Dosage: 10 MG, PRN
     Route: 048
     Dates: start: 20180206
  6. DARATUMUMAB [Concomitant]
     Active Substance: DARATUMUMAB
     Indication: PLASMA CELL MYELOMA
     Dosage: 16 MG/KG, QMT
     Route: 065
     Dates: start: 20180206
  7. CARFILZOMIB [Concomitant]
     Active Substance: CARFILZOMIB
     Indication: PLASMA CELL MYELOMA
     Dosage: 56 MG, DAYS 1,2,8,9,15,16 OF 4 WEEK CYCLE
     Route: 065
     Dates: start: 20180206
  8. PRIVIGEN [Suspect]
     Active Substance: HUMAN IMMUNOGLOBULIN G
     Indication: IMMUNOGLOBULINS DECREASED
     Dosage: 5 G, SINGLE
     Route: 042
     Dates: start: 20190103, end: 20190103
  9. PRIVIGEN [Suspect]
     Active Substance: HUMAN IMMUNOGLOBULIN G
     Dosage: 10 G, SINGLE
     Route: 042
     Dates: start: 20190213, end: 20190213
  10. PRIVIGEN [Suspect]
     Active Substance: HUMAN IMMUNOGLOBULIN G
     Indication: PLASMA CELL MYELOMA
     Dosage: 10 G, SINGLE
     Route: 042
     Dates: start: 20190103, end: 20190103
  11. PARACETAMOL [Concomitant]
     Active Substance: ACETAMINOPHEN
     Indication: PREMEDICATION
     Dosage: 1 G, PRN
     Route: 048
     Dates: start: 20180206
  12. PRIVIGEN [Suspect]
     Active Substance: HUMAN IMMUNOGLOBULIN G
     Dosage: 20 G, SINGLE
     Route: 042
     Dates: start: 20190213, end: 20190213
  13. APIXABAN [Concomitant]
     Active Substance: APIXABAN
     Indication: PULMONARY EMBOLISM
     Dosage: 5 ML, BID
     Route: 065
     Dates: start: 20180816
  14. BETAMETHASONE VALERATE. [Concomitant]
     Active Substance: BETAMETHASONE VALERATE
     Indication: RASH
     Dosage: UNK, BID
     Route: 065
     Dates: start: 20190218
  15. BACTRIM [Concomitant]
     Active Substance: SULFAMETHOXAZOLE\TRIMETHOPRIM
     Indication: PROPHYLAXIS
     Dosage: 1 TABLET, TWICE A DAY, TWICE WEEKLY
     Route: 048
     Dates: start: 20180205
  16. PRIVIGEN [Suspect]
     Active Substance: HUMAN IMMUNOGLOBULIN G
     Dosage: 10 G, SINGLE
     Route: 042
     Dates: start: 20190116, end: 20190116
  17. PANTOPRAZOLE [Concomitant]
     Active Substance: PANTOPRAZOLE
     Indication: PROPHYLAXIS
     Dosage: 40 MG, QD
     Route: 048
     Dates: start: 20180205
  18. PRIVIGEN [Suspect]
     Active Substance: HUMAN IMMUNOGLOBULIN G
     Dosage: 5 G, SINGLE
     Route: 042
     Dates: start: 20190116, end: 20190116
  19. AUGMENTIN [Concomitant]
     Active Substance: AMOXICILLIN\CLAVULANATE POTASSIUM
     Indication: URINARY TRACT INFECTION
     Dosage: 1 TABLET, BID
     Route: 048
     Dates: start: 20190107, end: 20190111
  20. PRIVIGEN [Suspect]
     Active Substance: HUMAN IMMUNOGLOBULIN G
     Indication: IMMUNODEFICIENCY COMMON VARIABLE
     Dosage: 20 G, SINGLE
     Route: 042
     Dates: start: 20190103, end: 20190103
  21. PRIVIGEN [Suspect]
     Active Substance: HUMAN IMMUNOGLOBULIN G
     Dosage: 20 G, SINGLE
     Route: 042
     Dates: start: 20190116, end: 20190116
  22. PRIVIGEN [Suspect]
     Active Substance: HUMAN IMMUNOGLOBULIN G
     Dosage: 10 G, UNK
     Route: 065
  23. FAMCICLOVIR. [Concomitant]
     Active Substance: FAMCICLOVIR
     Indication: PROPHYLAXIS
     Dosage: 500 MG, BID
     Route: 048
     Dates: start: 20180205
  24. DEXAMETHASONE. [Concomitant]
     Active Substance: DEXAMETHASONE
     Indication: PLASMA CELL MYELOMA
     Dosage: 40 MG, QW
     Route: 065
     Dates: start: 20180206
  25. GLUCOSAMINE [Concomitant]
     Active Substance: GLUCOSAMINE
     Indication: NUTRITIONAL SUPPLEMENTATION
     Dosage: 1000 ML, QD
     Route: 065
     Dates: start: 201709
  26. ZOMETA [Concomitant]
     Active Substance: ZOLEDRONIC ACID
     Indication: PROPHYLAXIS
     Dosage: 4 ML, QMT
     Route: 042
     Dates: start: 20170307

REACTIONS (4)
  - Hepatitis B [Not Recovered/Not Resolved]
  - Urinary tract infection [Unknown]
  - Hepatitis B core antibody positive [Unknown]
  - Rash [Unknown]

NARRATIVE: CASE EVENT DATE: 201901
